FAERS Safety Report 14203562 (Version 1)
Quarter: 2017Q4

REPORT INFORMATION
  Report Type: Report from Study
  Country: FR (occurrence: FR)
  Receive Date: 20171120
  Receipt Date: 20171120
  Transmission Date: 20180321
  Serious: Yes (Hospitalization)
  Sender: FDA-Public Use
  Company Number: FR-ROCHE-2022375

PATIENT
  Age: 67 Year
  Sex: Female

DRUGS (1)
  1. AVASTIN [Suspect]
     Active Substance: BEVACIZUMAB
     Indication: OVARIAN CANCER
     Route: 065
     Dates: start: 20161201, end: 20170801

REACTIONS (1)
  - Disease progression [Unknown]

NARRATIVE: CASE EVENT DATE: 20170728
